FAERS Safety Report 5442835-2 (Version None)
Quarter: 2007Q3

REPORT INFORMATION
  Report Type: 
  Country: None (occurrence: None)
  Receive Date: 20070830
  Receipt Date: 20070816
  Transmission Date: 20080115
  Serious: Yes (Hospitalization)
  Sender: FDA-Public Use
  Company Number: 2007SP002914

PATIENT
  Age: 57 Year
  Sex: Male
  Weight: 140.5 kg

DRUGS (1)
  1. XOPENEX [Suspect]
     Indication: CHRONIC OBSTRUCTIVE PULMONARY DISEASE
     Dosage: ;PRN; INHALATION
     Route: 055

REACTIONS (2)
  - HYPOKALAEMIA [None]
  - LEUKOCYTOSIS [None]
